FAERS Safety Report 7968903-9 (Version None)
Quarter: 2011Q4

REPORT INFORMATION
  Report Type: 
  Country: None (occurrence: None)
  Receive Date: 20111208
  Receipt Date: 20111128
  Transmission Date: 20120403
  Serious: Yes (Other)
  Sender: FDA-Public Use
  Company Number: CL-358-2011

PATIENT
  Age: 35 Year
  Sex: Female

DRUGS (3)
  1. CITALOPRAM [Concomitant]
  2. METRONIDAZOLE [Suspect]
     Indication: VAGINITIS BACTERIAL
     Dosage: 2G ONCE ORAL
     Route: 048
     Dates: start: 20111109, end: 20111109
  3. TRIMETHOPRIM [Concomitant]

REACTIONS (7)
  - FLUSHING [None]
  - DRY MOUTH [None]
  - NASAL CONGESTION [None]
  - DYSPNOEA [None]
  - ANAPHYLACTIC REACTION [None]
  - SWELLING FACE [None]
  - STEVENS-JOHNSON SYNDROME [None]
